FAERS Safety Report 7152846-7 (Version None)
Quarter: 2010Q4

REPORT INFORMATION
  Report Type: 
  Country: None (occurrence: None)
  Receive Date: 20101123
  Receipt Date: 20101021
  Transmission Date: 20110411
  Serious: No
  Sender: FDA-Public Use
  Company Number: 020918

PATIENT
  Sex: Female

DRUGS (1)
  1. CIMZIA [Suspect]
     Indication: CROHN'S DISEASE
     Dosage: ( SUBCUTANEOUS)
     Route: 058
     Dates: start: 20081117

REACTIONS (5)
  - BURNING SENSATION [None]
  - LABORATORY TEST ABNORMAL [None]
  - MALAISE [None]
  - OROPHARYNGEAL PAIN [None]
  - SINUS HEADACHE [None]
